FAERS Safety Report 22038269 (Version 1)
Quarter: 2023Q1

REPORT INFORMATION
  Report Type: Spontaneous
  Country: CN (occurrence: CN)
  Receive Date: 20230227
  Receipt Date: 20230227
  Transmission Date: 20230417
  Serious: Yes (Hospitalization, Other)
  Sender: FDA-Public Use
  Company Number: CN-STERISCIENCE B.V.-2023-ST-000782

PATIENT
  Age: 3 Year

DRUGS (24)
  1. VANCOMYCIN [Suspect]
     Active Substance: VANCOMYCIN
     Indication: Antibiotic therapy
     Dosage: 1MG, 0.1ML
     Route: 065
  2. CEFTAZIDIME [Suspect]
     Active Substance: CEFTAZIDIME
     Indication: Antibiotic therapy
     Dosage: 1MG, 0.1ML
  3. CEFTAZIDIME [Suspect]
     Active Substance: CEFTAZIDIME
     Dosage: UNK
  4. CEFUROXIME [Suspect]
     Active Substance: CEFUROXIME
     Indication: Prophylaxis
     Dosage: UNK
     Route: 042
  5. CEFUROXIME [Suspect]
     Active Substance: CEFUROXIME
     Indication: Evidence based treatment
  6. DEXAMETHASONE [Suspect]
     Active Substance: DEXAMETHASONE
     Indication: Prophylaxis
     Dosage: UNK
     Route: 065
  7. DEXAMETHASONE [Suspect]
     Active Substance: DEXAMETHASONE
     Indication: Evidence based treatment
  8. DEXAMETHASONE [Suspect]
     Active Substance: DEXAMETHASONE
     Indication: Antiinflammatory therapy
  9. GATIFLOXACIN [Suspect]
     Active Substance: GATIFLOXACIN
     Indication: Antibiotic therapy
     Dosage: EYE GEL
     Route: 065
  10. GATIFLOXACIN [Suspect]
     Active Substance: GATIFLOXACIN
     Dosage: TO ENHANCE ANTIINFECTION EFFECTS
  11. GATIFLOXACIN [Suspect]
     Active Substance: GATIFLOXACIN
     Dosage: TREATED WITH PENICILLIN, AMIKACIN, SULFAMETHOXAZOLE, SULFACETAMIDE AND GATIFLOXACIN.
  12. LEVOFLOXACIN [Suspect]
     Active Substance: LEVOFLOXACIN
     Indication: Antibiotic therapy
     Dosage: UNK
     Route: 065
  13. PREDNISONE ACETATE [Suspect]
     Active Substance: PREDNISONE ACETATE
     Indication: Antiinflammatory therapy
     Dosage: UNK
     Route: 065
  14. TOBRAMYCIN AND DEXAMETHASONE [Suspect]
     Active Substance: DEXAMETHASONE\TOBRAMYCIN
     Indication: Antiinflammatory therapy
     Dosage: UNK
  15. TOBRAMYCIN AND DEXAMETHASONE [Suspect]
     Active Substance: DEXAMETHASONE\TOBRAMYCIN
     Indication: Antibiotic therapy
  16. TOBRAMYCIN [Suspect]
     Active Substance: TOBRAMYCIN
     Indication: Antibiotic therapy
     Dosage: 20000U, 0.5ML
     Route: 057
  17. TOBRAMYCIN [Suspect]
     Active Substance: TOBRAMYCIN
     Dosage: TO ENHANCE ANTIINFECTION EFFECTS
  18. VORICONAZOLE [Concomitant]
     Active Substance: VORICONAZOLE
     Indication: Antifungal treatment
     Dosage: UNK
     Route: 042
  19. VORICONAZOLE [Concomitant]
     Active Substance: VORICONAZOLE
     Dosage: EYE DROPS EVERY HOUR
  20. VORICONAZOLE [Concomitant]
     Active Substance: VORICONAZOLE
     Dosage: ON THE NEXT DAY AFTER SURGERY, INJECTION
  21. FLUCONAZOLE [Concomitant]
     Active Substance: FLUCONAZOLE
     Indication: Antifungal treatment
     Dosage: UNK
     Route: 057
  22. AMIKACIN [Concomitant]
     Active Substance: AMIKACIN
     Indication: Antibiotic therapy
     Dosage: TO ENHANCE ANTIINFECTION EFFECTS
     Route: 065
  23. AMIKACIN [Concomitant]
     Active Substance: AMIKACIN
     Dosage: UNDERWENT VITRECTOMY AND RECEIVED ON HOSPITAL DAY 6
  24. AMIKACIN [Concomitant]
     Active Substance: AMIKACIN
     Dosage: TREATED WITH AMIKACIN

REACTIONS (2)
  - Bacterial endophthalmitis [None]
  - Nocardiosis [None]
